FAERS Safety Report 4789866-3 (Version None)
Quarter: 2005Q3

REPORT INFORMATION
  Report Type: 
  Country: None (occurrence: None)
  Receive Date: 20050914
  Receipt Date: 20041217
  Transmission Date: 20060218
  Serious: Yes (Death)
  Sender: FDA-Public Use
  Company Number: 163-20785-04120512

PATIENT
  Age: 87 Year
  Sex: Female

DRUGS (1)
  1. THALOMID [Suspect]
     Indication: MULTIPLE MYELOMA
     Dosage: 200-600MG, DAILY, ORAL
     Route: 048
     Dates: start: 20040129, end: 20040901

REACTIONS (4)
  - DEATH [None]
  - DISEASE PROGRESSION [None]
  - PANCYTOPENIA [None]
  - SEPSIS [None]
